FAERS Safety Report 26127764 (Version 2)
Quarter: 2025Q4

REPORT INFORMATION
  Report Type: Spontaneous
  Country: JP (occurrence: JP)
  Receive Date: 20251206
  Receipt Date: 20251208
  Transmission Date: 20260118
  Serious: Yes (Other)
  Sender: ROCHE
  Company Number: JP-ROCHE-10000445818

PATIENT
  Age: 65 Year
  Sex: Male

DRUGS (11)
  1. BEVACIZUMAB [Suspect]
     Active Substance: BEVACIZUMAB
     Indication: Colorectal cancer
     Route: 065
  2. FLUOROURACIL [Suspect]
     Active Substance: FLUOROURACIL
     Indication: Colorectal cancer
     Dosage: CONTINUOUS INFUSION OVER 48 H
     Route: 042
  3. FLUOROURACIL [Suspect]
     Active Substance: FLUOROURACIL
     Route: 042
  4. LEUCOVORIN [Suspect]
     Active Substance: LEUCOVORIN\LEUCOVORIN CALCIUM
     Indication: Colorectal cancer
     Dosage: ON DAY 1
     Route: 065
  5. OXALIPLATIN [Suspect]
     Active Substance: OXALIPLATIN
     Indication: Colorectal cancer
     Dosage: ON DAY 1
     Route: 065
  6. ENCORAFENIB [Concomitant]
     Active Substance: ENCORAFENIB
     Indication: Colorectal cancer
  7. CETUXIMAB [Concomitant]
     Active Substance: CETUXIMAB
     Indication: Colorectal cancer
     Dosage: AS AN INITIAL DOSE
  8. CETUXIMAB [Concomitant]
     Active Substance: CETUXIMAB
  9. MEROPENEM [Concomitant]
     Active Substance: MEROPENEM
     Indication: Pancreatitis
  10. MEROPENEM [Concomitant]
     Active Substance: MEROPENEM
     Indication: Stenotrophomonas infection
  11. MINOCYCLINE [Concomitant]
     Active Substance: MINOCYCLINE HYDROCHLORIDE
     Indication: Stenotrophomonas infection

REACTIONS (1)
  - Pneumonitis [Unknown]
